FAERS Safety Report 6018086-X (Version None)
Quarter: 2008Q4

REPORT INFORMATION
  Report Type: 
  Country: None (occurrence: None)
  Receive Date: 20081223
  Receipt Date: 20081218
  Transmission Date: 20090506
  Serious: Yes (Death)
  Sender: FDA-Public Use
  Company Number: JP-NOVOPROD-272109

PATIENT
  Age: 39 Year
  Sex: Male
  Weight: 50 kg

DRUGS (4)
  1. NOVOSEVEN [Suspect]
     Indication: HAEMORRHAGE
     Dosage: 4.8 MG, QD
     Route: 042
     Dates: start: 20071210, end: 20080202
  2. KALETRA                            /01399701/ [Concomitant]
     Indication: HIV INFECTION
     Dosage: 4 CAPS, QD
     Route: 048
     Dates: start: 20071210
  3. ZIAGEN [Concomitant]
     Route: 048
  4. VIREAD                             /01490002/ [Concomitant]
     Route: 048

REACTIONS (1)
  - HAEMORRHAGE INTRACRANIAL [None]
